FAERS Safety Report 7853167-7 (Version None)
Quarter: 2011Q4

REPORT INFORMATION
  Report Type: 
  Country: None (occurrence: None)
  Receive Date: 20111026
  Receipt Date: 20111020
  Transmission Date: 20120403
  Serious: Yes (Life-Threatening)
  Sender: FDA-Public Use
  Company Number: CA-MERCK-1108USA02564

PATIENT
  Age: 72 Year
  Sex: Female

DRUGS (6)
  1. SINGULAIR [Suspect]
     Indication: LUNG DISORDER
     Route: 048
     Dates: start: 20110818, end: 20110819
  2. ATORVASTATIN [Concomitant]
     Route: 065
  3. VENTOLIN [Concomitant]
     Route: 065
  4. MICARDIS [Concomitant]
     Route: 065
  5. PULMICORT [Concomitant]
     Route: 065
  6. SYMBICORT [Concomitant]
     Indication: OBSTRUCTIVE AIRWAYS DISORDER
     Route: 065
     Dates: start: 20110818

REACTIONS (5)
  - DYSPHAGIA [None]
  - SWOLLEN TONGUE [None]
  - DYSPNOEA [None]
  - TERMINAL INSOMNIA [None]
  - EYE SWELLING [None]
